FAERS Safety Report 16923485 (Version 2)
Quarter: 2019Q4

REPORT INFORMATION
  Report Type: Spontaneous
  Country: US (occurrence: US)
  Receive Date: 20191016
  Receipt Date: 20191112
  Transmission Date: 20200122
  Serious: No
  Sender: FDA-Public Use
  Company Number: US-NEUROCRINE BIOSCIENCES INC.-2019NBI02944

PATIENT
  Sex: Female

DRUGS (4)
  1. INGREZZA [Suspect]
     Active Substance: VALBENAZINE
     Indication: TARDIVE DYSKINESIA
     Dates: start: 201709, end: 201810
  2. INGREZZA [Suspect]
     Active Substance: VALBENAZINE
     Dates: start: 20190926, end: 2019
  3. INGREZZA [Suspect]
     Active Substance: VALBENAZINE
     Dates: start: 201907, end: 20190813
  4. INGREZZA [Suspect]
     Active Substance: VALBENAZINE
     Dates: start: 20190814, end: 20190925

REACTIONS (1)
  - Tremor [Not Recovered/Not Resolved]

NARRATIVE: CASE EVENT DATE: 2019
